FAERS Safety Report 4878999-9 (Version None)
Quarter: 2006Q1

REPORT INFORMATION
  Report Type: 
  Country: None (occurrence: None)
  Receive Date: 20060112
  Receipt Date: 20031104
  Transmission Date: 20060701
  Serious: Yes (Death, Hospitalization)
  Sender: FDA-Public Use
  Company Number: US-MERCK-0311USA00267

PATIENT
  Age: 54 Year
  Sex: Male
  Weight: 82 kg

DRUGS (5)
  1. VIOXX [Suspect]
     Indication: TENDONITIS
     Route: 048
     Dates: start: 20000628, end: 20001022
  2. PRAVACHOL [Concomitant]
     Route: 065
     Dates: start: 19960101
  3. VIOXX [Suspect]
     Indication: ARTHRALGIA
     Route: 048
     Dates: start: 20000628, end: 20001022
  4. PRAVACHOL [Concomitant]
     Route: 065
     Dates: end: 20001022
  5. ZANTAC [Concomitant]
     Indication: ULCER
     Route: 065
     Dates: start: 19960101, end: 20001022

REACTIONS (3)
  - CARDIAC ARREST [None]
  - CORONARY ARTERY DISEASE [None]
  - EXCESSIVE EXERCISE [None]
